FAERS Safety Report 10602361 (Version 2)
Quarter: 2014Q4

REPORT INFORMATION
  Report Type: Spontaneous
  Country: IT (occurrence: IT)
  Receive Date: 20141124
  Receipt Date: 20141209
  Transmission Date: 20150529
  Serious: Yes (Hospitalization)
  Sender: FDA-Public Use
  Company Number: IT-ELI_LILLY_AND_COMPANY-IT201411004916

PATIENT
  Age: 69 Year
  Sex: Male
  Weight: 95 kg

DRUGS (6)
  1. ALIMTA [Suspect]
     Active Substance: PEMETREXED DISODIUM
     Indication: LUNG ADENOCARCINOMA
     Dosage: 750 MG, CYCLICAL
     Route: 042
     Dates: start: 20140707, end: 20140707
  2. NEBIVOLOL [Concomitant]
     Active Substance: NEBIVOLOL
     Dosage: 5 MG, UNKNOWN
     Route: 048
  3. METFORMIN [Concomitant]
     Active Substance: METFORMIN HYDROCHLORIDE
     Dosage: 1500 MG, UNKNOWN
     Route: 048
  4. LORTAAN [Concomitant]
     Active Substance: LOSARTAN POTASSIUM
     Dosage: 12.5 MG, UNKNOWN
     Route: 048
  5. REPAGLINIDE. [Concomitant]
     Active Substance: REPAGLINIDE
  6. NORVASC [Concomitant]
     Active Substance: AMLODIPINE BESYLATE
     Dosage: 10 MG, UNKNOWN
     Route: 048

REACTIONS (3)
  - Diarrhoea [Recovered/Resolved]
  - Hepatitis [Recovered/Resolved]
  - Proctitis ulcerative [Recovering/Resolving]

NARRATIVE: CASE EVENT DATE: 20140711
